FAERS Safety Report 13416792 (Version 3)
Quarter: 2017Q2

REPORT INFORMATION
  Report Type: Spontaneous
  Country: US (occurrence: US)
  Receive Date: 20170407
  Receipt Date: 20170613
  Transmission Date: 20170830
  Serious: Yes (Other)
  Sender: FDA-Public Use
  Company Number: US-BAYER-2017-059427

PATIENT
  Age: 79 Year
  Sex: Male
  Weight: 78 kg

DRUGS (1)
  1. COPPERTONE SPORT SUNSCREEN SPF 50 [Suspect]
     Active Substance: AVOBENZONE\HOMOSALATE\OCTISALATE\OCTOCRYLENE\OXYBENZONE
     Indication: THERAPEUTIC SKIN CARE TOPICAL
     Dosage: 1 DF, BID (1 APPLICATION IN THE MORNING BEFORE WALKING OUTDOORS AND A SECOND APPLICATION DURING DAY)
     Route: 061

REACTIONS (3)
  - Poor quality drug administered [Unknown]
  - Basal cell carcinoma [Unknown]
  - Product physical consistency issue [Unknown]
